FAERS Safety Report 6583372-1 (Version None)
Quarter: 2010Q1

REPORT INFORMATION
  Report Type: 
  Country: None (occurrence: None)
  Receive Date: 20100216
  Receipt Date: 20100212
  Transmission Date: 20100710
  Serious: Yes (Death)
  Sender: FDA-Public Use
  Company Number: GXKR2010DE01721

PATIENT
  Age: 46 Year
  Sex: Male

DRUGS (2)
  1. TRAMADOL (NGX) [Suspect]
     Route: 065
  2. NICOTINE [Interacting]
     Dosage: 25 TRANSDERMAL PATCHES (7 MG-DOSES)
     Route: 062

REACTIONS (3)
  - CARDIOPULMONARY FAILURE [None]
  - COMPLETED SUICIDE [None]
  - DRUG TOXICITY [None]
